FAERS Safety Report 11821019 (Version 1)
Quarter: 2015Q4

REPORT INFORMATION
  Report Type: Spontaneous
  Country: US (occurrence: US)
  Receive Date: 20151210
  Receipt Date: 20151210
  Transmission Date: 20160305
  Serious: No
  Sender: FDA-Public Use
  Company Number: US-JNJFOC-20150502146

PATIENT
  Sex: Female

DRUGS (9)
  1. PAROXETINE [Concomitant]
     Active Substance: PAROXETINE\PAROXETINE HYDROCHLORIDE
  2. GABAPENTIN. [Concomitant]
     Active Substance: GABAPENTIN
  3. IMBRUVICA [Suspect]
     Active Substance: IBRUTINIB
     Indication: CHRONIC LYMPHOCYTIC LEUKAEMIA
     Route: 048
     Dates: start: 20150415
  4. GLYBURIDE. [Concomitant]
     Active Substance: GLYBURIDE
  5. LEVOTHYROXINE. [Concomitant]
     Active Substance: LEVOTHYROXINE
  6. LISINOPRIL. [Concomitant]
     Active Substance: LISINOPRIL
  7. ATENOLOL. [Concomitant]
     Active Substance: ATENOLOL
  8. GLIPIZIDE. [Concomitant]
     Active Substance: GLIPIZIDE
  9. FUROSEMIDE. [Concomitant]
     Active Substance: FUROSEMIDE

REACTIONS (8)
  - Dyspepsia [Not Recovered/Not Resolved]
  - Fatigue [Not Recovered/Not Resolved]
  - Myalgia [Not Recovered/Not Resolved]
  - Abdominal pain upper [Unknown]
  - Dysgeusia [Not Recovered/Not Resolved]
  - Blood uric acid increased [Unknown]
  - Muscle spasms [Unknown]
  - Diarrhoea [Recovering/Resolving]

NARRATIVE: CASE EVENT DATE: 2015
